FAERS Safety Report 5201312-4 (Version None)
Quarter: 2007Q1

REPORT INFORMATION
  Report Type: 
  Country: None (occurrence: None)
  Receive Date: 20070103
  Receipt Date: 20061218
  Transmission Date: 20070707
  Serious: Yes (Disabling)
  Sender: FDA-Public Use
  Company Number: 234327

PATIENT
  Sex: Female
  Weight: 63 kg

DRUGS (1)
  1. HERCEPTIN [Suspect]
     Indication: BREAST CANCER
     Dosage: 380 MG, INTRAVENOUS
     Route: 042
     Dates: start: 20040915

REACTIONS (3)
  - DRY SKIN [None]
  - SKIN EXFOLIATION [None]
  - SKIN FISSURES [None]
